FAERS Safety Report 4383724-4 (Version None)
Quarter: 2004Q2

REPORT INFORMATION
  Report Type: 
  Country: None (occurrence: None)
  Receive Date: 20040608
  Receipt Date: 20031106
  Transmission Date: 20050107
  Serious: Yes (Hospitalization, Other)
  Sender: FDA-Public Use
  Company Number: 200314112BCC

PATIENT
  Age: 82 Year
  Sex: Female
  Weight: 81.6475 kg

DRUGS (3)
  1. ALEVE [Suspect]
     Indication: ARTHRITIS
     Dosage: 220 MG, QD, ORAL
     Route: 048
  2. PROPRANOLOL [Concomitant]
  3. LISINOPRIL [Concomitant]

REACTIONS (2)
  - GASTRIC ULCER [None]
  - HAEMATEMESIS [None]
